FAERS Safety Report 21229759 (Version 2)
Quarter: 2022Q3

REPORT INFORMATION
  Report Type: Spontaneous
  Country: CN (occurrence: CN)
  Receive Date: 20220818
  Receipt Date: 20220826
  Transmission Date: 20221027
  Serious: Yes (Hospitalization)
  Sender: FDA-Public Use
  Company Number: None

PATIENT
  Age: 51 Year
  Sex: Female
  Weight: 71 kg

DRUGS (2)
  1. MANNITOL [Suspect]
     Active Substance: MANNITOL
     Indication: Diuretic therapy
     Dosage: 100.0 ML ONCE DAILY
     Route: 041
     Dates: start: 20220801, end: 20220804
  2. MANNITOL [Suspect]
     Active Substance: MANNITOL
     Indication: Swelling

REACTIONS (3)
  - Chest discomfort [Recovering/Resolving]
  - Blood potassium decreased [Recovering/Resolving]
  - Blood pressure increased [Recovering/Resolving]

NARRATIVE: CASE EVENT DATE: 20220804
